FAERS Safety Report 9361166 (Version 1)
Quarter: 2013Q2

REPORT INFORMATION
  Report Type: Spontaneous
  Country: US (occurrence: None)
  Receive Date: 20130618
  Receipt Date: 20130618
  Transmission Date: 20140414
  Serious: Yes (Hospitalization)
  Sender: FDA-Public Use
  Company Number: 2013AP006017

PATIENT
  Age: 28 Year
  Sex: Male

DRUGS (4)
  1. ALPRAZOLAM [Suspect]
  2. DIAMORPHINE [Suspect]
  3. VALPROIC ACID [Concomitant]
  4. ESCITALOPRAM [Concomitant]

REACTIONS (13)
  - Loss of consciousness [None]
  - Cyanosis [None]
  - Slow response to stimuli [None]
  - Brain injury [None]
  - Central nervous system lesion [None]
  - Chorea [None]
  - Dystonia [None]
  - Balance disorder [None]
  - Bradykinesia [None]
  - Overdose [None]
  - Drooling [None]
  - Cognitive disorder [None]
  - Dysgraphia [None]
